FAERS Safety Report 11866762 (Version 2)
Quarter: 2015Q4

REPORT INFORMATION
  Report Type: Report from Study
  Country: HU (occurrence: HU)
  Receive Date: 20151224
  Receipt Date: 20151230
  Transmission Date: 20160305
  Serious: No
  Sender: FDA-Public Use
  Company Number: HU-UCBSA-2014009234

PATIENT
  Age: 64 Year
  Sex: Female
  Weight: 80 kg

DRUGS (8)
  1. METHOTREXATE [Concomitant]
     Active Substance: METHOTREXATE
     Indication: RHEUMATOID ARTHRITIS
     Dosage: 15 MG, QS
     Route: 048
     Dates: start: 20080828
  2. GLICLAZIDE [Concomitant]
     Active Substance: GLICLAZIDE
     Indication: DIABETES MELLITUS
     Dosage: 120 MG, ONCE DAILY (QD)
     Route: 048
     Dates: start: 2008
  3. HYDROCHLOROTHIAZIDE. [Concomitant]
     Active Substance: HYDROCHLOROTHIAZIDE
     Indication: HYPERTENSION
     Dosage: 6.25 MG, 2X/DAY (BID)
     Route: 048
     Dates: start: 2009
  4. CERTOLIZUMAB PEGOL RA [Suspect]
     Active Substance: CERTOLIZUMAB PEGOL
     Indication: RHEUMATOID ARTHRITIS
     Dosage: UNK
     Route: 058
     Dates: end: 20131212
  5. ENALAPRIL [Concomitant]
     Active Substance: ENALAPRIL
     Indication: HYPERTENSION
     Dosage: 10 MG, 2X/DAY (BID)
     Route: 048
     Dates: start: 2009
  6. LEVOTHYROXINE SODIUM. [Concomitant]
     Active Substance: LEVOTHYROXINE SODIUM
     Indication: UNEVALUABLE EVENT
     Dosage: 150 ?G, ONCE DAILY (QD)
     Route: 048
     Dates: start: 2009
  7. FOLIC ACID. [Concomitant]
     Active Substance: FOLIC ACID
     Indication: TOXICITY TO VARIOUS AGENTS
     Dosage: 6 MG, QS
     Route: 048
     Dates: start: 20081020
  8. METFORMIN [Concomitant]
     Active Substance: METFORMIN HYDROCHLORIDE
     Indication: DIABETES MELLITUS
     Dosage: 1000 MG, 2X/DAY (BID)
     Route: 048
     Dates: start: 2009

REACTIONS (1)
  - Latent tuberculosis [Not Recovered/Not Resolved]

NARRATIVE: CASE EVENT DATE: 20131212
